FAERS Safety Report 18213863 (Version 1)
Quarter: 2020Q3

REPORT INFORMATION
  Report Type: Spontaneous
  Country: US (occurrence: US)
  Receive Date: 20200831
  Receipt Date: 20200831
  Transmission Date: 20201103
  Serious: Yes (Other)
  Sender: FDA-Public Use
  Company Number: None

PATIENT
  Age: 68 Year
  Sex: Female
  Weight: 117 kg

DRUGS (4)
  1. VENLAFAXINE ER 75 MG CAPSULE 1 PO QD [Suspect]
     Active Substance: VENLAFAXINE HYDROCHLORIDE
     Indication: DEPRESSION
     Dosage: ??          QUANTITY:1 CAPSULE(S);?
     Route: 048
     Dates: start: 20200827, end: 20200827
  2. DAILY WOMEN^S ONCE A DAY [Concomitant]
  3. DAILY VITAMINS [Concomitant]
     Active Substance: VITAMINS
  4. OMEPRAZOLE. [Concomitant]
     Active Substance: OMEPRAZOLE

REACTIONS (6)
  - Vomiting [None]
  - Headache [None]
  - Dizziness [None]
  - Agitation [None]
  - Nausea [None]
  - Vision blurred [None]

NARRATIVE: CASE EVENT DATE: 20200827
